FAERS Safety Report 9684099 (Version 1)
Quarter: 2013Q4

REPORT INFORMATION
  Report Type: Spontaneous
  Country: US (occurrence: US)
  Receive Date: 20131112
  Receipt Date: 20131112
  Transmission Date: 20140711
  Serious: No
  Sender: FDA-Public Use
  Company Number: US-TEVA-443388USA

PATIENT
  Sex: Male
  Weight: 78.54 kg

DRUGS (4)
  1. AZILECT [Suspect]
     Indication: PARKINSON^S DISEASE
  2. CARBIDOPA W/LEVODOPA [Concomitant]
     Indication: PARKINSON^S DISEASE
  3. SIMVASTATIN [Concomitant]
     Indication: BLOOD CHOLESTEROL ABNORMAL
  4. TIMOLOL [Concomitant]
     Indication: GLAUCOMA

REACTIONS (2)
  - Anosmia [Not Recovered/Not Resolved]
  - Weight decreased [Not Recovered/Not Resolved]
